FAERS Safety Report 7369710-0 (Version None)
Quarter: 2011Q1

REPORT INFORMATION
  Report Type: 
  Country: None (occurrence: None)
  Receive Date: 20110323
  Receipt Date: 20110318
  Transmission Date: 20110831
  Serious: Yes (Death, Hospitalization)
  Sender: FDA-Public Use
  Company Number: PHHY2011GB19148

PATIENT
  Age: 63 Year
  Sex: Female
  Weight: 70 kg

DRUGS (14)
  1. ARCOXIA [Concomitant]
     Dosage: 90 MG, QD
     Route: 048
     Dates: start: 20090101
  2. COLISTIN SULFATE [Concomitant]
     Dates: end: 20100401
  3. ALENDRONIC ACID [Concomitant]
     Dosage: 70 MG, QW
     Dates: start: 20070101
  4. LEVOTHYROXINE SODIUM [Concomitant]
  5. METHOTREXATE [Suspect]
     Indication: RHEUMATOID ARTHRITIS
     Dosage: 15 MG, QW
     Route: 048
     Dates: end: 20100901
  6. LEFLUNOMIDE [Suspect]
     Indication: RHEUMATOID ARTHRITIS
     Dosage: 20 MG, QD
     Route: 048
     Dates: end: 20100901
  7. SALAZOPYRIN [Concomitant]
     Dosage: 2 G, QD
     Route: 048
  8. SULPHASALAZINE [Concomitant]
     Indication: RHEUMATOID ARTHRITIS
  9. CORTICOSTEROID NOS [Concomitant]
     Indication: RHEUMATOID ARTHRITIS
  10. LANSOPRAZOLE [Concomitant]
     Indication: GASTROOESOPHAGEAL REFLUX DISEASE
     Dosage: 30 MG, QD
     Route: 048
  11. WARFARIN [Concomitant]
  12. CALCIUM [Concomitant]
  13. COLOMYCIN [Concomitant]
  14. ETORICOXIB [Concomitant]
     Indication: RHEUMATOID ARTHRITIS
     Dosage: 90 MG, UNK

REACTIONS (14)
  - DYSPNOEA [None]
  - ISCHAEMIA [None]
  - HYPERTENSION [None]
  - PULMONARY FIBROSIS [None]
  - INTERSTITIAL LUNG DISEASE [None]
  - PULMONARY EMBOLISM [None]
  - BRONCHIECTASIS [None]
  - ORGANISING PNEUMONIA [None]
  - CANDIDA TEST POSITIVE [None]
  - HYPOXIA [None]
  - ASPERGILLUS TEST POSITIVE [None]
  - ABDOMINAL DISCOMFORT [None]
  - STENOTROPHOMONAS TEST POSITIVE [None]
  - PNEUMONITIS [None]
